FAERS Safety Report 7904842-7 (Version None)
Quarter: 2011Q4

REPORT INFORMATION
  Report Type: 
  Country: None (occurrence: None)
  Receive Date: 20111109
  Receipt Date: 20111027
  Transmission Date: 20120403
  Serious: Yes (Other)
  Sender: FDA-Public Use
  Company Number: PHHY2011FR95350

PATIENT
  Sex: Male
  Weight: 69 kg

DRUGS (2)
  1. MEMANTINE HYDROCHLORIDE [Concomitant]
     Dosage: 10 MG, UNK
  2. EXELON [Suspect]
     Indication: DEMENTIA ALZHEIMER'S TYPE
     Dosage: 4.6 MG/24 HOURS
     Route: 062

REACTIONS (3)
  - CARDIAC OUTPUT DECREASED [None]
  - FALL [None]
  - ORTHOSTATIC HYPOTENSION [None]
